FAERS Safety Report 14488376 (Version 1)
Quarter: 2018Q1

REPORT INFORMATION
  Report Type: Spontaneous
  Country: US (occurrence: US)
  Receive Date: 20180203
  Receipt Date: 20180203
  Transmission Date: 20180509
  Serious: Yes (Other)
  Sender: FDA-Public Use
  Company Number: None

PATIENT
  Age: 26 Year
  Sex: Male
  Weight: 81.65 kg

DRUGS (1)
  1. REMICADE [Suspect]
     Active Substance: INFLIXIMAB
     Dosage: FREQUENCY - EVERY 8 WEEKS
     Route: 042

REACTIONS (2)
  - Blood urine present [None]
  - Haematochezia [None]

NARRATIVE: CASE EVENT DATE: 20180126
